FAERS Safety Report 5568081-X (Version None)
Quarter: 2007Q4

REPORT INFORMATION
  Report Type: 
  Country: None (occurrence: None)
  Receive Date: 20071220
  Receipt Date: 20071213
  Transmission Date: 20080405
  Serious: Yes (Hospitalization, Other)
  Sender: FDA-Public Use
  Company Number: CS-NOVOPROD-269414

PATIENT
  Sex: Female
  Weight: 56.5 kg

DRUGS (2)
  1. NOVORAPID FLEXPEN [Suspect]
     Indication: TYPE 1 DIABETES MELLITUS
     Dosage: 8+10+8 IU, QD
     Route: 058
     Dates: start: 20061017
  2. LEVEMIR [Suspect]
     Indication: TYPE 1 DIABETES MELLITUS
     Dosage: 12 IU, QD
     Route: 058
     Dates: start: 20061017

REACTIONS (1)
  - ABORTION SPONTANEOUS [None]
